FAERS Safety Report 10243277 (Version 1)
Quarter: 2014Q2

REPORT INFORMATION
  Report Type: Spontaneous
  Country: US (occurrence: None)
  Receive Date: 20140616
  Receipt Date: 20140616
  Transmission Date: 20141212
  Serious: No
  Sender: FDA-Public Use
  Company Number: 14-01448

PATIENT
  Sex: Male

DRUGS (1)
  1. ASTHMANEFRIN 2.25% INHALATION SOLUTION (NEPHRON) [Suspect]
     Dosage: 1 PUFF 054
     Dates: start: 20140527

REACTIONS (2)
  - Dizziness [None]
  - Fall [None]
